FAERS Safety Report 5874359-2 (Version None)
Quarter: 2008Q3

REPORT INFORMATION
  Report Type: 
  Country: None (occurrence: None)
  Receive Date: 20080908
  Receipt Date: 20080903
  Transmission Date: 20090109
  Serious: Yes (Other)
  Sender: FDA-Public Use
  Company Number: ES-MERCK-0804ESP00062

PATIENT
  Age: 85 Year
  Sex: Male

DRUGS (1)
  1. TRUSOPT [Suspect]
     Indication: OCULAR HYPERTENSION
     Route: 047
     Dates: start: 20030101, end: 20080401

REACTIONS (2)
  - CORNEAL DISORDER [None]
  - CORNEAL OEDEMA [None]
